FAERS Safety Report 4810855-4 (Version None)
Quarter: 2005Q4

REPORT INFORMATION
  Report Type: 
  Country: None (occurrence: None)
  Receive Date: 20051025
  Receipt Date: 20051015
  Transmission Date: 20060501
  Serious: Yes (Other)
  Sender: FDA-Public Use
  Company Number: US-2005-021408

PATIENT
  Age: 49 Year
  Sex: Female
  Weight: 54.4 kg

DRUGS (2)
  1. CLIMARA [Suspect]
     Indication: HORMONE REPLACEMENT THERAPY
     Dosage: 0.045/0.015 MG/D, CONT, TRANSDERMAL
     Route: 062
     Dates: start: 20050801, end: 20051008
  2. PROZAC [Concomitant]

REACTIONS (2)
  - RETINAL HAEMORRHAGE [None]
  - RETINAL VASCULAR THROMBOSIS [None]
